FAERS Safety Report 19238515 (Version 4)
Quarter: 2023Q2

REPORT INFORMATION
  Report Type: Report from Study
  Country: CA (occurrence: CA)
  Receive Date: 20210510
  Receipt Date: 20230405
  Transmission Date: 20230721
  Serious: Yes (Other)
  Sender: FDA-Public Use
  Company Number: CA-ABBVIE-21K-028-3891679-00

PATIENT
  Sex: Female

DRUGS (3)
  1. RINVOQ [Suspect]
     Active Substance: UPADACITINIB
     Indication: Rheumatoid arthritis
     Dosage: FORM STRENGTH: 15 MG
     Route: 048
     Dates: start: 20210405
  2. RINVOQ [Suspect]
     Active Substance: UPADACITINIB
     Indication: Rheumatoid arthritis
     Route: 048
  3. AMIODARONE [Suspect]
     Active Substance: AMIODARONE
     Indication: Product used for unknown indication
     Route: 065

REACTIONS (8)
  - Pulmonary fibrosis [Unknown]
  - Urine abnormality [Unknown]
  - Pneumaturia [Unknown]
  - Increased upper airway secretion [Unknown]
  - Cardiac aneurysm [Unknown]
  - Osteoarthritis [Unknown]
  - Hepatic enzyme increased [Unknown]
  - Ureteral wall thickening [Unknown]

NARRATIVE: CASE EVENT DATE: 20210101
